FAERS Safety Report 24241348 (Version 1)
Quarter: 2024Q3

REPORT INFORMATION
  Report Type: Spontaneous
  Country: US (occurrence: US)
  Receive Date: 20240823
  Receipt Date: 20240823
  Transmission Date: 20241016
  Serious: Yes (Other)
  Sender: SHILPA MEDICARE
  Company Number: US-KOANAAP-SML-US-2024-00854

PATIENT
  Age: 7 Year
  Sex: Male

DRUGS (2)
  1. IMATINIB [Suspect]
     Active Substance: IMATINIB
     Indication: Endocarditis fibroplastica
  2. MILRINONE [Suspect]
     Active Substance: MILRINONE
     Indication: Endocarditis fibroplastica

REACTIONS (1)
  - Drug ineffective [Unknown]
